FAERS Safety Report 10579359 (Version 3)
Quarter: 2014Q4

REPORT INFORMATION
  Report Type: Spontaneous
  Country: JP (occurrence: JP)
  Receive Date: 20141112
  Receipt Date: 20141211
  Transmission Date: 20150529
  Serious: Yes (Hospitalization, Other)
  Sender: FDA-Public Use
  Company Number: JP-TAKEDA-2014JNJ006145

PATIENT

DRUGS (1)
  1. VELCADE [Suspect]
     Active Substance: BORTEZOMIB
     Indication: PLASMA CELL MYELOMA
     Dosage: 1 MG, 1/WEEK
     Route: 058
     Dates: start: 2013

REACTIONS (1)
  - Gastrointestinal perforation [Recovering/Resolving]

NARRATIVE: CASE EVENT DATE: 20141105
